FAERS Safety Report 11567580 (Version 2)
Quarter: 2015Q4

REPORT INFORMATION
  Report Type: Spontaneous
  Country: US (occurrence: US)
  Receive Date: 20150916
  Receipt Date: 20151104
  Transmission Date: 20160304
  Serious: No
  Sender: FDA-Public Use
  Company Number: US-ELI_LILLY_AND_COMPANY-US200907005524

PATIENT
  Sex: Female

DRUGS (12)
  1. FUROSEMIDE. [Concomitant]
     Active Substance: FUROSEMIDE
     Indication: FLUID RETENTION
  2. FORTEO [Suspect]
     Active Substance: TERIPARATIDE
     Indication: OSTEOPOROSIS
     Dosage: 20 UG, DAILY (1/D)
     Dates: start: 200906, end: 2009
  3. CENTRUM /00554501/ [Concomitant]
     Active Substance: VITAMINS
  4. POTASSIUM CHLORIDE. [Concomitant]
     Active Substance: POTASSIUM CHLORIDE
  5. FORTEO [Suspect]
     Active Substance: TERIPARATIDE
     Dosage: 20 UG, DAILY (1/D)
     Dates: start: 2009
  6. LOTREL [Concomitant]
     Active Substance: AMLODIPINE BESYLATE\BENAZEPRIL HYDROCHLORIDE
     Indication: HYPERTENSION
  7. OSCAL                              /00514701/ [Concomitant]
  8. ATENOLOL. [Concomitant]
     Active Substance: ATENOLOL
  9. SIMVASTATIN. [Concomitant]
     Active Substance: SIMVASTATIN
     Indication: BLOOD CHOLESTEROL INCREASED
  10. LASIX [Concomitant]
     Active Substance: FUROSEMIDE
  11. FORTEO [Suspect]
     Active Substance: TERIPARATIDE
     Dosage: 20 UG, QD
  12. HYDRALAZINE [Concomitant]
     Active Substance: HYDRALAZINE HYDROCHLORIDE

REACTIONS (18)
  - Bone pain [Recovering/Resolving]
  - Erythema [Recovering/Resolving]
  - Hypoaesthesia [Recovering/Resolving]
  - Bone disorder [Recovering/Resolving]
  - Hypokinesia [Recovered/Resolved]
  - Feeling abnormal [Unknown]
  - Pain in extremity [Recovering/Resolving]
  - Joint swelling [Unknown]
  - Contusion [Unknown]
  - Fear of injection [Unknown]
  - Incision site erythema [Unknown]
  - Arthralgia [Recovered/Resolved]
  - Cellulitis [Recovering/Resolving]
  - Infection [Recovering/Resolving]
  - Tendon rupture [Unknown]
  - Finger deformity [Unknown]
  - Arthropathy [Unknown]
  - Incision site pain [Unknown]

NARRATIVE: CASE EVENT DATE: 2009
